FAERS Safety Report 7795949 (Version 2)
Quarter: 2013Q4

REPORT INFORMATION
  Report Type: Report from Study
  Country: US (occurrence: US)
  Receive Date: 20110202
  Receipt Date: 20131220
  Transmission Date: 20140711
  Serious: Yes (Hospitalization)
  Sender: FDA-Public Use
  Company Number: US-ACTELION-A-US2011-44124

PATIENT
  Age: 75 Year
  Sex: Female

DRUGS (3)
  1. TRACLEER [Suspect]
     Indication: PULMONARY HYPERTENSION
     Dosage: UNK
     Route: 048
     Dates: start: 20100526
  2. REVATIO [Concomitant]
  3. COUMADIN [Concomitant]

REACTIONS (2)
  - Pulmonary oedema [Unknown]
  - Cardiac failure [Unknown]
